FAERS Safety Report 14695297 (Version 2)
Quarter: 2018Q2

REPORT INFORMATION
  Report Type: Spontaneous
  Country: US (occurrence: US)
  Receive Date: 20180329
  Receipt Date: 20180402
  Transmission Date: 20180711
  Serious: No
  Sender: FDA-Public Use
  Company Number: US-BAYER-2018-062124

PATIENT
  Age: 73 Year
  Sex: Female
  Weight: 70 kg

DRUGS (3)
  1. CLARITIN [Suspect]
     Active Substance: LORATADINE
     Indication: HYPERSENSITIVITY
     Dosage: 1 DF, QD
     Route: 048
     Dates: start: 20180326
  2. CLARITIN [Suspect]
     Active Substance: LORATADINE
     Indication: COUGH
  3. CLARITIN [Suspect]
     Active Substance: LORATADINE
     Indication: NASOPHARYNGITIS
     Dosage: 2 DF, ONCE
     Route: 048
     Dates: start: 20180329, end: 20180329

REACTIONS (4)
  - Product use in unapproved indication [Unknown]
  - Extra dose administered [Recovered/Resolved]
  - Off label use [Unknown]
  - Drug administration error [Unknown]

NARRATIVE: CASE EVENT DATE: 20180326
